FAERS Safety Report 22295789 (Version 2)
Quarter: 2024Q3

REPORT INFORMATION
  Report Type: Report from Study
  Country: IT (occurrence: IT)
  Receive Date: 20230508
  Receipt Date: 20240711
  Transmission Date: 20241017
  Serious: Yes (Hospitalization, Other)
  Sender: TEVA
  Company Number: None

PATIENT
  Age: 9 Year
  Sex: Female
  Weight: 27 kg

DRUGS (2)
  1. VINCRISTINE [Suspect]
     Active Substance: VINCRISTINE
     Indication: Glioma
     Dosage: VINCRISTINA TEVA ITALIA, 1.44 MG/DAY ON 07, 14/03/23, 1.30 MG/DAY ON 03/21/23 AND 1.10 MG/DAY ON ...
     Route: 065
     Dates: start: 20230307, end: 20230404
  2. CARBOPLATIN [Suspect]
     Active Substance: CARBOPLATIN
     Indication: Glioma
     Dosage: CARBOPLATINO TEVA
     Route: 042
     Dates: start: 20230307, end: 20230328

REACTIONS (7)
  - Neutropenia [Not Recovered/Not Resolved]
  - Anaemia [Not Recovered/Not Resolved]
  - Alopecia [Not Recovered/Not Resolved]
  - Pyrexia [Recovered/Resolved]
  - Peripheral sensory neuropathy [Recovering/Resolving]
  - Abdominal pain [Recovering/Resolving]
  - Pancytopenia [Recovering/Resolving]

NARRATIVE: CASE EVENT DATE: 20230314
